FAERS Safety Report 7024313-2 (Version None)
Quarter: 2010Q4

REPORT INFORMATION
  Report Type: 
  Country: None (occurrence: None)
  Receive Date: 20101001
  Receipt Date: 20100924
  Transmission Date: 20110411
  Serious: Yes (Other)
  Sender: FDA-Public Use
  Company Number: GB-PFIZER INC-2010121557

PATIENT

DRUGS (1)
  1. LIPITOR [Suspect]
     Indication: PROPHYLAXIS
     Dosage: 80 MG, 1X/DAY

REACTIONS (1)
  - GLYCOSYLATED HAEMOGLOBIN INCREASED [None]
